FAERS Safety Report 8442884-6 (Version None)
Quarter: 2012Q2

REPORT INFORMATION
  Report Type: 
  Country: None (occurrence: None)
  Receive Date: 20120615
  Receipt Date: 20120606
  Transmission Date: 20120825
  Serious: Yes (Life-Threatening)
  Sender: FDA-Public Use
  Company Number: CH-FRI-1000031397

PATIENT
  Sex: Female

DRUGS (6)
  1. ESCITALOPRAM [Suspect]
     Indication: DEPRESSION
     Dosage: 10 MG
     Route: 048
     Dates: start: 20020101, end: 20120224
  2. CALCIMAGON D3 [Concomitant]
     Indication: OSTEOPOROSIS
     Dosage: 1000 MG
     Route: 048
  3. IMOVANE [Concomitant]
     Indication: SLEEP DISORDER
     Dosage: 7.5 MG
     Route: 048
  4. SYMFONA FORTE [Suspect]
     Indication: COGNITIVE DISORDER
     Dosage: 60 MG
     Route: 048
     Dates: end: 20120224
  5. ACETAMINOPHEN [Concomitant]
     Indication: PAIN
     Route: 048
  6. OMEPRAZOLE [Concomitant]
     Indication: PRODUCT USED FOR UNKNOWN INDICATION
     Dosage: 40 MG
     Route: 048

REACTIONS (1)
  - HAEMORRHAGIC DISORDER [None]
